FAERS Safety Report 23526074 (Version 1)
Quarter: 2024Q1

REPORT INFORMATION
  Report Type: Spontaneous
  Country: CA (occurrence: CA)
  Receive Date: 20240215
  Receipt Date: 20240215
  Transmission Date: 20240409
  Serious: Yes (Other)
  Sender: FDA-Public Use
  Company Number: CA-002147023-NVSC2024CA031486

PATIENT
  Age: 65 Year
  Sex: Male
  Weight: 88 kg

DRUGS (1)
  1. KYMRIAH [Suspect]
     Active Substance: TISAGENLECLEUCEL
     Indication: Follicular lymphoma
     Dosage: 1 DOSAGE FORM, ONCE/SINGLE (FORMULATION: SUSPENSION INTRAVENOUS)
     Route: 042

REACTIONS (2)
  - Renal injury [Recovering/Resolving]
  - Renal neoplasm [Recovering/Resolving]
